FAERS Safety Report 9849068 (Version 1)
Quarter: 2014Q1

REPORT INFORMATION
  Report Type: Spontaneous
  Country: US (occurrence: None)
  Receive Date: 20140124
  Receipt Date: 20140124
  Transmission Date: 20141002
  Serious: Yes (Hospitalization)
  Sender: FDA-Public Use
  Company Number: None

PATIENT
  Age: 3 Year
  Sex: Female
  Weight: 13.8 kg

DRUGS (4)
  1. DOXORUBICIN HYDROCHLORIDE [Suspect]
  2. VINCRISTINE SULFATE [Suspect]
  3. BENADRYL [Concomitant]
  4. TYLENOL [Concomitant]

REACTIONS (1)
  - Abdominal pain [None]
